FAERS Safety Report 7302252-7 (Version None)
Quarter: 2011Q1

REPORT INFORMATION
  Report Type: 
  Country: None (occurrence: None)
  Receive Date: 20110218
  Receipt Date: 20110207
  Transmission Date: 20110831
  Serious: Yes (Hospitalization)
  Sender: FDA-Public Use
  Company Number: PHHY2011PL09358

PATIENT
  Sex: Male
  Weight: 60 kg

DRUGS (4)
  1. METHOTREXATE [Suspect]
     Indication: BLADDER CANCER
     Dosage: UNK
     Route: 042
     Dates: start: 20110126
  2. VINBLASTINE SULFATE [Suspect]
     Indication: BLADDER CANCER
     Dosage: UNK
     Route: 042
     Dates: start: 20110126
  3. CISPLATIN [Suspect]
     Indication: BLADDER CANCER
     Dosage: UNK
     Route: 042
     Dates: start: 20110126
  4. ADRIAMYCIN PFS [Suspect]
     Indication: BLADDER CANCER
     Dosage: UNK
     Route: 042
     Dates: start: 20110126

REACTIONS (1)
  - FEBRILE NEUTROPENIA [None]
